FAERS Safety Report 21268612 (Version 6)
Quarter: 2022Q4

REPORT INFORMATION
  Report Type: Report from Study
  Country: PL (occurrence: None)
  Receive Date: 20220830
  Receipt Date: 20221209
  Transmission Date: 20230113
  Serious: Yes (Death, Hospitalization)
  Sender: FDA-Public Use
  Company Number: PL-ROCHE-3168720

PATIENT
  Age: 72 Year
  Sex: Female
  Weight: 106.3 kg

DRUGS (21)
  1. MOSUNETUZUMAB [Suspect]
     Active Substance: MOSUNETUZUMAB
     Indication: Diffuse large B-cell lymphoma
     Dosage: THE START DATE OF MOST RECENT DOSE OF STUDY DRUG MOSUNETUZUMAB (5 MG) PRIOR TO AE AND SAE ONSET: 03/
     Route: 058
     Dates: start: 20220803
  2. POLATUZUMAB VEDOTIN [Suspect]
     Active Substance: POLATUZUMAB VEDOTIN
     Indication: Diffuse large B-cell lymphoma
     Dosage: THE START DATE OF MOST RECENT DOSE OF STUDY DRUG POLATUZUMAB VEDOTIN (191.3 MG) PRIOR TO AE AND SAE
     Route: 042
     Dates: start: 20220803
  3. BISOPROLOL [Concomitant]
     Active Substance: BISOPROLOL
     Route: 048
     Dates: start: 20220316
  4. PREDNISONE [Concomitant]
     Active Substance: PREDNISONE
     Route: 048
     Dates: start: 20220727, end: 20220802
  5. LAMIVUDINE [Concomitant]
     Active Substance: LAMIVUDINE
     Route: 048
     Dates: start: 20220803
  6. IPP (POLAND) [Concomitant]
     Route: 042
  7. ENOXAPARIN SODIUM [Concomitant]
     Active Substance: ENOXAPARIN SODIUM
     Route: 042
  8. CALCIUM CHLORIDE\MAGNESIUM CHLORIDE\POTASSIUM CHLORIDE\SODIUM ACETATE\ [Concomitant]
     Active Substance: CALCIUM CHLORIDE\MAGNESIUM CHLORIDE\POTASSIUM CHLORIDE\SODIUM ACETATE\SODIUM CHLORIDE\SODIUM CITRATE
     Route: 042
  9. DEXAMETHASONE [Concomitant]
     Active Substance: DEXAMETHASONE
     Route: 042
  10. HYDROCORTISONE SODIUM SUCCINATE [Concomitant]
     Active Substance: HYDROCORTISONE SODIUM SUCCINATE
     Route: 042
  11. PROPOFOL [Concomitant]
     Active Substance: PROPOFOL
     Route: 042
  12. METAMIZOLE KALCEKS [Concomitant]
     Route: 042
  13. DOBUSTAT [Concomitant]
     Route: 065
  14. SODIUM CHLORIDE [Concomitant]
     Active Substance: SODIUM CHLORIDE
     Route: 042
  15. CORDARONE [Concomitant]
     Active Substance: AMIODARONE HYDROCHLORIDE
  16. LEVOFLOXACIN [Concomitant]
     Active Substance: LEVOFLOXACIN
  17. MORPHINE SULFATE [Concomitant]
     Active Substance: MORPHINE SULFATE
     Route: 042
  18. MIDAZOLAM KALCEKS [Concomitant]
     Route: 065
  19. LEVONOR (POLAND) [Concomitant]
     Route: 065
  20. FUROSEMIDE [Concomitant]
     Active Substance: FUROSEMIDE
     Dosage: 0.2/2
     Route: 042
  21. PROPOFOL [Concomitant]
     Active Substance: PROPOFOL

REACTIONS (1)
  - COVID-19 [Fatal]

NARRATIVE: CASE EVENT DATE: 20220810
